FAERS Safety Report 10032825 (Version 2)
Quarter: 2014Q2

REPORT INFORMATION
  Report Type: Spontaneous
  Country: GB (occurrence: GB)
  Receive Date: 20140324
  Receipt Date: 20140404
  Transmission Date: 20141212
  Serious: Yes (Life-Threatening, Hospitalization)
  Sender: FDA-Public Use
  Company Number: GB-PFIZER INC-2014081405

PATIENT
  Age: 66 Year
  Sex: Female

DRUGS (10)
  1. SPIRONOLACTONE [Suspect]
     Indication: ASCITES
     Dosage: 150 MG, 1X/DAY
     Route: 048
     Dates: start: 20131224, end: 20131231
  2. HYDROMOL [Concomitant]
     Dosage: 100 G, UNK
  3. ANTEPSIN [Concomitant]
     Dosage: 5 ML, 4X/DAY
     Route: 048
  4. FUROSEMIDE [Concomitant]
     Dosage: 40 MG, 1X/DAY
  5. PROPRANOLOL [Concomitant]
     Indication: HYPERTENSION
     Dosage: 10 MG, 2X/DAY
  6. PROPRANOLOL [Concomitant]
     Dosage: 40 MG, 1X/DAY
  7. CETOMACROGOL 1000 [Concomitant]
     Dosage: 500 G, UNK
  8. BENDROFLUMETHIAZIDE [Concomitant]
     Dosage: 2.5 MG, 1X/DAY
  9. VALSARTAN [Concomitant]
     Dosage: 40 MG, 1X/DAY
  10. URSODEOXYCHOLIC ACID [Concomitant]
     Dosage: 250 MG, 3X/DAY

REACTIONS (1)
  - Stevens-Johnson syndrome [Recovered/Resolved]
